FAERS Safety Report 11793113 (Version 1)
Quarter: 2015Q4

REPORT INFORMATION
  Report Type: Spontaneous
  Country: US (occurrence: None)
  Receive Date: 20151130
  Receipt Date: 20151130
  Transmission Date: 20160305
  Serious: Yes (Hospitalization)
  Sender: FDA-Public Use
  Company Number: 2014US-78184

PATIENT
  Age: 72 Year
  Sex: Male

DRUGS (8)
  1. OLANZAPINE. [Concomitant]
     Active Substance: OLANZAPINE
  2. PAROXETINE [Concomitant]
     Active Substance: PAROXETINE\PAROXETINE HYDROCHLORIDE
  3. METFORMIN [Concomitant]
     Active Substance: METFORMIN HYDROCHLORIDE
  4. DULOXETINE. [Concomitant]
     Active Substance: DULOXETINE
  5. LITHIUM (LITHIUM CARBONATE) UNKNOWN [Suspect]
     Active Substance: LITHIUM
     Indication: PRODUCT USED FOR UNKNOWN INDICATION
  6. ASPIRIN (ACETYLSALICYLIC ACID) UNKNOWN 325MG [Suspect]
     Active Substance: ASPIRIN
     Indication: PRODUCT USED FOR UNKNOWN INDICATION
  7. LISINOPRIL (LISINOPRIL) UNKNOWN, UNKNOWN [Suspect]
     Active Substance: LISINOPRIL
     Indication: PRODUCT USED FOR UNKNOWN INDICATION
  8. ARIPRAZOLE [Concomitant]
     Active Substance: ARIPIPRAZOLE

REACTIONS (10)
  - Hypotension [None]
  - Pneumonia [None]
  - Toxicity to various agents [None]
  - Drug interaction [None]
  - Haemodialysis [None]
  - Apnoea [None]
  - Mental status changes [None]
  - Hypothermia [None]
  - Bradycardia [None]
  - Multi-organ disorder [None]
